FAERS Safety Report 5429283-6 (Version None)
Quarter: 2007Q3

REPORT INFORMATION
  Report Type: 
  Country: None (occurrence: None)
  Receive Date: 20070827
  Receipt Date: 20070827
  Transmission Date: 20080115
  Serious: Yes (Hospitalization)
  Sender: FDA-Public Use
  Company Number: None

PATIENT
  Sex: Male
  Weight: 83.8 kg

DRUGS (3)
  1. METHOTREXATE [Suspect]
     Dosage: 20515 MG
  2. LEUCOVORIN CALCIUM [Suspect]
     Dosage: 336 MG
  3. MERCAPTOPURINE [Suspect]
     Dosage: 900 MG

REACTIONS (21)
  - AGITATION [None]
  - ALTERED STATE OF CONSCIOUSNESS [None]
  - APHASIA [None]
  - APNOEA [None]
  - ASTHENIA [None]
  - CONFUSIONAL STATE [None]
  - DELIRIUM [None]
  - DYSARTHRIA [None]
  - DYSPHAGIA [None]
  - DYSSTASIA [None]
  - EMOTIONAL DISTRESS [None]
  - FACIAL PALSY [None]
  - HEADACHE [None]
  - HEMIPARESIS [None]
  - LEUKOENCEPHALOPATHY [None]
  - MENTAL IMPAIRMENT [None]
  - MOVEMENT DISORDER [None]
  - NEUROTOXICITY [None]
  - PAIN [None]
  - SPEECH DISORDER [None]
  - URINARY INCONTINENCE [None]
